FAERS Safety Report 10230465 (Version 1)
Quarter: 2014Q2

REPORT INFORMATION
  Report Type: Spontaneous
  Country: US (occurrence: US)
  Receive Date: 20140611
  Receipt Date: 20140611
  Transmission Date: 20141212
  Serious: Yes (Other)
  Sender: FDA-Public Use
  Company Number: US-INCYTE CORPORATION-2014IN000819

PATIENT
  Sex: Male

DRUGS (7)
  1. JAKAFI [Suspect]
     Indication: MYELOPROLIFERATIVE DISORDER
     Dosage: 15 MG, QD
     Route: 048
  2. TERAZOSIN [Concomitant]
  3. HYDROCHLOROTHIAZIDE [Concomitant]
  4. ALLOPURINOL [Concomitant]
  5. METOPROLOL [Concomitant]
  6. GABAPENTIN [Concomitant]
  7. ASPIRIN [Concomitant]
     Dosage: 81 MG, UNK

REACTIONS (1)
  - Anaemia [Unknown]
